FAERS Safety Report 9146036 (Version 2)
Quarter: 2015Q3

REPORT INFORMATION
  Report Type: Spontaneous
  Country: BR (occurrence: BR)
  Receive Date: 20130307
  Receipt Date: 20150702
  Transmission Date: 20151125
  Serious: Yes (Hospitalization, Other)
  Sender: FDA-Public Use
  Company Number: PHHY2012BR118720

PATIENT
  Sex: Male
  Weight: 63 kg

DRUGS (4)
  1. LIPITOR [Concomitant]
     Active Substance: ATORVASTATIN CALCIUM
     Indication: HYPERLIPIDAEMIA
     Dosage: 10 MG, QD SINCE 10 YEARS AGO
     Route: 048
  2. CARVEDILOL. [Concomitant]
     Active Substance: CARVEDILOL
     Indication: HYPERLIPIDAEMIA
     Dosage: 1 DF, QD SINCE 4 YEARS AGO
     Route: 048
  3. ONBREZ [Suspect]
     Active Substance: INDACATEROL
     Indication: EMPHYSEMA
     Dosage: 150 UG, QD
     Route: 055
  4. DIURISA [Concomitant]
     Active Substance: AMILORIDE HYDROCHLORIDE\FUROSEMIDE
     Indication: DYSURIA
     Dosage: 1 DF, QD SINCE 4 YEARS AGO
     Route: 048

REACTIONS (3)
  - Pulmonary oedema [Not Recovered/Not Resolved]
  - Pneumonia [Not Recovered/Not Resolved]
  - Dyspnoea [Not Recovered/Not Resolved]

NARRATIVE: CASE EVENT DATE: 2011
